FAERS Safety Report 5744242-1 (Version None)
Quarter: 2008Q2

REPORT INFORMATION
  Report Type: 
  Country: None (occurrence: None)
  Receive Date: 20080520
  Receipt Date: 20080508
  Transmission Date: 20081010
  Serious: Yes (Other)
  Sender: FDA-Public Use
  Company Number: CA-AVENTIS-200812109EU

PATIENT
  Age: 56 Year
  Sex: Male

DRUGS (13)
  1. LOVENOX [Suspect]
     Route: 058
     Dates: start: 20070616, end: 20070626
  2. ALLOPURINOL [Concomitant]
     Indication: GOUT
     Dates: start: 20030101, end: 20070614
  3. ALLOPURINOL [Concomitant]
     Dates: start: 20070618
  4. MULTI-VITAMINS [Concomitant]
     Indication: VITAMIN SUPPLEMENTATION
     Dates: start: 20060101
  5. NEURONTIN [Concomitant]
     Dates: start: 20070615, end: 20070618
  6. COLACE [Concomitant]
     Dates: start: 20070615, end: 20070620
  7. ANCEF                              /00288502/ [Concomitant]
     Dates: start: 20070615, end: 20070615
  8. ANCEF                              /00288502/ [Concomitant]
     Dates: start: 20070615, end: 20070616
  9. PERCOCET [Concomitant]
     Indication: PAIN MANAGEMENT
     Route: 048
     Dates: start: 20070616, end: 20070618
  10. MORPHINE PUMP [Concomitant]
     Dates: start: 20070615, end: 20070616
  11. TYLENOL [Concomitant]
     Dates: start: 20070618, end: 20070626
  12. MILK OF MAGNESIA [Concomitant]
     Indication: CONSTIPATION PROPHYLAXIS
     Dates: start: 20070618, end: 20070618
  13. SENOKOT [Concomitant]
     Indication: CONSTIPATION PROPHYLAXIS
     Route: 048
     Dates: start: 20070619, end: 20070619

REACTIONS (4)
  - ALANINE AMINOTRANSFERASE INCREASED [None]
  - ASPARTATE AMINOTRANSFERASE INCREASED [None]
  - BLOOD ALKALINE PHOSPHATASE INCREASED [None]
  - GAMMA-GLUTAMYLTRANSFERASE INCREASED [None]
